FAERS Safety Report 12798017 (Version 1)
Quarter: 2016Q3

REPORT INFORMATION
  Report Type: Spontaneous
  Country: US (occurrence: US)
  Receive Date: 20160929
  Receipt Date: 20160929
  Transmission Date: 20161109
  Serious: No
  Sender: FDA-Public Use
  Company Number: None

PATIENT
  Age: 37 Year
  Sex: Female
  Weight: 65.25 kg

DRUGS (2)
  1. ADDERALL [Suspect]
     Active Substance: AMPHETAMINE ASPARTATE\AMPHETAMINE SULFATE\DEXTROAMPHETAMINE SACCHARATE\DEXTROAMPHETAMINE SULFATE
     Indication: ATTENTION DEFICIT/HYPERACTIVITY DISORDER
     Dosage: ?          QUANTITY:1 TABLET(S);?
     Route: 048
     Dates: start: 20160910, end: 20160928
  2. MELATONIN [Concomitant]
     Active Substance: MELATONIN

REACTIONS (17)
  - Gastrointestinal disorder [None]
  - Product quality issue [None]
  - Irritability [None]
  - Headache [None]
  - Thirst [None]
  - Dry mouth [None]
  - Emotional disorder [None]
  - Malaise [None]
  - Product counterfeit [None]
  - Attention deficit/hyperactivity disorder [None]
  - Disturbance in attention [None]
  - Mydriasis [None]
  - Intentional product use issue [None]
  - Mental disorder [None]
  - Drug ineffective [None]
  - Sluggishness [None]
  - Disease recurrence [None]

NARRATIVE: CASE EVENT DATE: 20160910
